FAERS Safety Report 10169987 (Version 1)
Quarter: 2014Q2

REPORT INFORMATION
  Report Type: Report from Study
  Country: US (occurrence: US)
  Receive Date: 20140513
  Receipt Date: 20140513
  Transmission Date: 20141212
  Serious: Yes (Hospitalization)
  Sender: FDA-Public Use
  Company Number: US-BRISTOL-MYERS SQUIBB COMPANY-20703708

PATIENT
  Sex: Female

DRUGS (8)
  1. ARIPIPRAZOLE [Suspect]
     Dates: start: 20130703, end: 20140311
  2. ABILIFY [Concomitant]
  3. CITALOPRAM [Concomitant]
  4. ATENOLOL [Concomitant]
  5. OXYBUTYNIN [Concomitant]
  6. RANITIDINE [Concomitant]
  7. LORATADINE [Concomitant]
  8. TRAMADOL [Concomitant]

REACTIONS (1)
  - Parathyroid tumour benign [Recovered/Resolved]
